FAERS Safety Report 4502846-8 (Version None)
Quarter: 2004Q4

REPORT INFORMATION
  Report Type: 
  Country: None (occurrence: None)
  Receive Date: 20041112
  Receipt Date: 20041101
  Transmission Date: 20050328
  Serious: Yes (Death)
  Sender: FDA-Public Use
  Company Number: 186751

PATIENT
  Sex: Female
  Weight: 81.6475 kg

DRUGS (3)
  1. AVONEX [Suspect]
     Indication: MULTIPLE SCLEROSIS
     Dosage: 30 MCG Q W IM
     Route: 030
     Dates: start: 20000101, end: 20030701
  2. BACLOFEN [Concomitant]
  3. OXYCONTIN [Concomitant]

REACTIONS (1)
  - DEATH [None]
